FAERS Safety Report 9158438 (Version 1)
Quarter: 2013Q1

REPORT INFORMATION
  Report Type: Spontaneous
  Country: FR (occurrence: FR)
  Receive Date: 20130312
  Receipt Date: 20130312
  Transmission Date: 20140127
  Serious: Yes (Hospitalization)
  Sender: FDA-Public Use
  Company Number: FR-TEVA-389369ISR

PATIENT
  Age: 46 Year
  Sex: Female

DRUGS (5)
  1. ESTREVA [Suspect]
     Indication: HORMONE REPLACEMENT THERAPY
     Route: 048
  2. SPIFEN [Suspect]
     Indication: HEADACHE
     Route: 048
  3. ESTIMA [Suspect]
     Route: 048
  4. CARBOSYMAG [Concomitant]
  5. SPAGULAX [Concomitant]

REACTIONS (2)
  - Meningitis aseptic [Recovered/Resolved]
  - Cystitis [Unknown]
